FAERS Safety Report 8570220-3 (Version None)
Quarter: 2012Q3

REPORT INFORMATION
  Report Type: 
  Country: None (occurrence: None)
  Receive Date: 20120803
  Receipt Date: 20120723
  Transmission Date: 20120928
  Serious: Yes (Disabling, Other)
  Sender: FDA-Public Use
  Company Number: US-009507513-1202USA01313

PATIENT

DRUGS (6)
  1. LIPITOR [Suspect]
     Dosage: 20 MG, QD
     Route: 048
  2. ZOCOR [Suspect]
     Dosage: 20 MG, UNK
     Route: 048
  3. ASPIRIN [Concomitant]
     Indication: CARDIAC DISORDER
     Dosage: 385 MG, QD
  4. DOXAZOSIN MESYLATE [Concomitant]
     Indication: PROSTATIC DISORDER
     Dosage: 2 MG, QD
  5. TRICOR [Concomitant]
     Indication: BLOOD CHOLESTEROL INCREASED
     Dosage: 145 MG, QD
     Route: 048
  6. ZOCOR [Suspect]
     Indication: BLOOD CHOLESTEROL INCREASED
     Dosage: 40 MG, QD
     Route: 048
     Dates: start: 20020101

REACTIONS (4)
  - CORONARY ARTERY DISEASE [None]
  - INSOMNIA [None]
  - CARDIAC DISORDER [None]
  - BLADDER DISORDER [None]
